FAERS Safety Report 8477573-5 (Version None)
Quarter: 2012Q2

REPORT INFORMATION
  Report Type: 
  Country: None (occurrence: None)
  Receive Date: 20120629
  Receipt Date: 20120622
  Transmission Date: 20120825
  Serious: Yes (Hospitalization)
  Sender: FDA-Public Use
  Company Number: CO-PFIZER INC-2012152275

PATIENT
  Age: 72 Year
  Sex: Female

DRUGS (6)
  1. LYRICA [Suspect]
     Indication: BACK PAIN
     Dosage: 75 MG, UNK
     Dates: start: 20110101
  2. HYDROCHLOROTHIAZIDE [Concomitant]
     Indication: URINARY RETENTION
     Dosage: UNK
  3. NIFEDIPINE [Concomitant]
     Indication: ANGINA PECTORIS
     Dosage: 30 MG EVERY 12 HOURS ORALLY
     Route: 048
  4. TRAMADOL [Concomitant]
     Indication: PAIN
     Dosage: 10 DROPS THREE TIMES PER DAY (10 ML)
  5. LYRICA [Suspect]
     Indication: PAIN IN EXTREMITY
  6. LOSARTAN [Concomitant]
     Indication: HYPERTENSION
     Dosage: 100 MG EVERY 12 HOURS ORALLY
     Route: 048

REACTIONS (1)
  - CERVICAL SPINAL STENOSIS [None]
